FAERS Safety Report 6734643-7 (Version None)
Quarter: 2010Q2

REPORT INFORMATION
  Report Type: 
  Country: None (occurrence: None)
  Receive Date: 20100519
  Receipt Date: 20100504
  Transmission Date: 20101027
  Serious: Yes (Disabling, Other)
  Sender: FDA-Public Use
  Company Number: TRP_06919_2010

PATIENT
  Sex: Female
  Weight: 54.8852 kg

DRUGS (9)
  1. INFERGEN [Suspect]
     Indication: HEPATITIS C
     Dosage: 15 UG QD, SUBCUTANEOUS,  [DOSAGE CHANGED/HELD DURING THERAPY] SUBCUTANEOUS, (9 MCG), (15 UG QD)
     Route: 058
     Dates: end: 20100301
  2. INFERGEN [Suspect]
     Indication: HEPATITIS C
     Dosage: 15 UG QD, SUBCUTANEOUS,  [DOSAGE CHANGED/HELD DURING THERAPY] SUBCUTANEOUS, (9 MCG), (15 UG QD)
     Route: 058
     Dates: start: 20100309, end: 20100330
  3. INFERGEN [Suspect]
     Indication: HEPATITIS C
     Dosage: 15 UG QD, SUBCUTANEOUS,  [DOSAGE CHANGED/HELD DURING THERAPY] SUBCUTANEOUS, (9 MCG), (15 UG QD)
     Route: 058
     Dates: start: 20090929
  4. RIBAPAK 200 MG (NOT SPECIFIED) [Suspect]
     Indication: HEPATITIS C
     Dosage: 400 MG BID [DOSAGE HELD/POSSIBLE DOSAGE CHANGE DURING THERAPYP] ORAL, (400 MG), (400 MG BID)
     Route: 048
     Dates: end: 20100301
  5. RIBAPAK 200 MG (NOT SPECIFIED) [Suspect]
     Indication: HEPATITIS C
     Dosage: 400 MG BID [DOSAGE HELD/POSSIBLE DOSAGE CHANGE DURING THERAPYP] ORAL, (400 MG), (400 MG BID)
     Route: 048
     Dates: start: 20100309, end: 20100330
  6. RIBAPAK 200 MG (NOT SPECIFIED) [Suspect]
     Indication: HEPATITIS C
     Dosage: 400 MG BID [DOSAGE HELD/POSSIBLE DOSAGE CHANGE DURING THERAPYP] ORAL, (400 MG), (400 MG BID)
     Route: 048
     Dates: start: 20090317
  7. PEGASYS [Suspect]
     Indication: HEPATITIS C
     Dosage: DF
  8. GABAPENTIN [Concomitant]
  9. AROMASIN [Concomitant]

REACTIONS (22)
  - ALANINE AMINOTRANSFERASE INCREASED [None]
  - ANAEMIA [None]
  - ANGIOGRAM ABNORMAL [None]
  - ARTHRALGIA [None]
  - BACK PAIN [None]
  - DEPRESSION [None]
  - GASTROOESOPHAGEAL REFLUX DISEASE [None]
  - GLOMERULAR FILTRATION RATE DECREASED [None]
  - HAEMATOCRIT DECREASED [None]
  - HAEMOGLOBIN DECREASED [None]
  - HEPATITIS C RNA INCREASED [None]
  - HYPOCALCAEMIA [None]
  - IMPAIRED DRIVING ABILITY [None]
  - MYALGIA [None]
  - OPTIC ISCHAEMIC NEUROPATHY [None]
  - PAIN IN EXTREMITY [None]
  - PLATELET COUNT DECREASED [None]
  - RED BLOOD CELL COUNT DECREASED [None]
  - RETINAL HAEMORRHAGE [None]
  - VISUAL FIELD DEFECT [None]
  - VISUAL IMPAIRMENT [None]
  - WHITE BLOOD CELL COUNT DECREASED [None]
